FAERS Safety Report 10386071 (Version 1)
Quarter: 2014Q1

REPORT INFORMATION
  Report Type: Spontaneous
  Country: US (occurrence: None)
  Receive Date: 20140306
  Receipt Date: 20140306
  Transmission Date: 20141002
  Serious: Yes (Other)
  Sender: FDA-Public Use
  Company Number: 163-21880-13063674

PATIENT
  Age: 67 Year
  Sex: Male
  Weight: 112.49 kg

DRUGS (10)
  1. REVLIMIB (LENALIDOMIDE) (25 MILLIGRAM, CAPSULES) [Suspect]
     Indication: PLASMA CELL MYELOMA
     Dosage: 25MG, 14 IN 21 D, PO
     Route: 048
     Dates: start: 20130425, end: 20130612
  2. ATENOLOL [Concomitant]
  3. VYTORIN (INEGY) [Concomitant]
  4. CENTRUM [Concomitant]
  5. FISH OIL [Concomitant]
  6. ASPIRIN (ACETYLSALICYLIC ACID) [Concomitant]
  7. ZOMETA (ZOLEDRONIC ACID) [Concomitant]
  8. VELCADE (BORTEZOMIB) [Concomitant]
  9. DECADRON (DEXAMETHASONE) [Concomitant]
  10. NEURONTIN (GABAPENTIN) [Concomitant]

REACTIONS (1)
  - Urticaria [None]
